FAERS Safety Report 14356495 (Version 3)
Quarter: 2018Q3

REPORT INFORMATION
  Report Type: Report from Study
  Country: JP (occurrence: JP)
  Receive Date: 20180105
  Receipt Date: 20180905
  Transmission Date: 20181010
  Serious: Yes (Other)
  Sender: FDA-Public Use
  Company Number: JP-JNJFOC-20180103888

PATIENT
  Age: 67 Year
  Sex: Male
  Weight: 75.4 kg

DRUGS (7)
  1. YONDELIS [Suspect]
     Active Substance: TRABECTEDIN
     Indication: MYXOFIBROSARCOMA
     Route: 042
     Dates: start: 20170214
  2. YONDELIS [Suspect]
     Active Substance: TRABECTEDIN
     Indication: MYXOFIBROSARCOMA
     Dosage: EVERY 3 WEEKS, A 24?HOUR INFUSION
     Route: 042
     Dates: start: 20161202
  3. YONDELIS [Suspect]
     Active Substance: TRABECTEDIN
     Indication: MYXOFIBROSARCOMA
     Route: 042
     Dates: start: 20170411
  4. YONDELIS [Suspect]
     Active Substance: TRABECTEDIN
     Indication: MYXOFIBROSARCOMA
     Route: 042
     Dates: start: 20161228
  5. YONDELIS [Suspect]
     Active Substance: TRABECTEDIN
     Indication: MYXOFIBROSARCOMA
     Route: 042
     Dates: start: 20170314
  6. DEXAMETHASONE. [Concomitant]
     Active Substance: DEXAMETHASONE
     Route: 065
     Dates: start: 20161202
  7. YONDELIS [Suspect]
     Active Substance: TRABECTEDIN
     Indication: MYXOFIBROSARCOMA
     Route: 042
     Dates: start: 20170120

REACTIONS (2)
  - Bone marrow failure [Recovering/Resolving]
  - Hepatic function abnormal [Recovering/Resolving]

NARRATIVE: CASE EVENT DATE: 20161213
